FAERS Safety Report 8247118-3 (Version None)
Quarter: 2012Q1

REPORT INFORMATION
  Report Type: 
  Country: None (occurrence: None)
  Receive Date: 20120316
  Receipt Date: 20091008
  Transmission Date: 20120608
  Serious: Yes (Other)
  Sender: FDA-Public Use
  Company Number: PHEH2009US13463

PATIENT
  Sex: Male

DRUGS (2)
  1. TEKTURNA [Suspect]
     Dosage: 150 MG, BID, ORAL
     Route: 048
  2. EXFORGE [Suspect]
     Dosage: 5/160

REACTIONS (2)
  - BLOOD PRESSURE SYSTOLIC DECREASED [None]
  - HYPOTENSION [None]
